FAERS Safety Report 8922504 (Version 4)
Quarter: 2013Q1

REPORT INFORMATION
  Report Type: Spontaneous
  Country: US (occurrence: US)
  Receive Date: 20121126
  Receipt Date: 20130322
  Transmission Date: 20140127
  Serious: No
  Sender: FDA-Public Use
  Company Number: US-009507513-1211USA002546

PATIENT
  Age: 67 None
  Sex: Female
  Weight: 101.13 kg

DRUGS (3)
  1. ALENDRONATE SODIUM [Suspect]
     Indication: OSTEOPENIA
     Dosage: 70 MG, QW
     Route: 048
     Dates: start: 20121031, end: 20121108
  2. SYNTHROID [Concomitant]
  3. LIPITOR [Concomitant]
     Dosage: UNK
     Dates: end: 201301

REACTIONS (8)
  - Dyspnoea [Recovered/Resolved]
  - Chest discomfort [Recovered/Resolved]
  - Muscle spasms [Recovered/Resolved]
  - Chest pain [Not Recovered/Not Resolved]
  - Arthralgia [Not Recovered/Not Resolved]
  - Back pain [Not Recovered/Not Resolved]
  - Myalgia [Recovering/Resolving]
  - Musculoskeletal discomfort [Recovering/Resolving]
